FAERS Safety Report 9319947 (Version 4)
Quarter: 2015Q1

REPORT INFORMATION
  Report Type: Spontaneous
  Country: JP (occurrence: JP)
  Receive Date: 20130530
  Receipt Date: 20150317
  Transmission Date: 20150721
  Serious: Yes (Death, Hospitalization, Other)
  Sender: FDA-Public Use
  Company Number: JP-PFIZER INC-2013062720

PATIENT
  Age: 7 Decade
  Sex: Male

DRUGS (8)
  1. INLYTA [Suspect]
     Active Substance: AXITINIB
     Dosage: 7 MG, 2X/DAY
     Route: 048
  2. INLYTA [Suspect]
     Active Substance: AXITINIB
     Dosage: 10 MG/DAY ANOTHER DAY
  3. LOXONIN [Suspect]
     Active Substance: LOXOPROFEN SODIUM
     Indication: BONE PAIN
     Dosage: ONCE A DAY
     Route: 048
  4. GASTER [Concomitant]
     Active Substance: FAMOTIDINE
  5. INLYTA [Suspect]
     Active Substance: AXITINIB
     Dosage: 5 MG, 2X/DAY
     Route: 048
  6. INLYTA [Suspect]
     Active Substance: AXITINIB
     Dosage: 14 MG/DAY ONE DAY
  7. INLYTA [Suspect]
     Active Substance: AXITINIB
     Indication: METASTATIC RENAL CELL CARCINOMA
     Dosage: 5 MG, 2X/DAY
     Route: 048
  8. INLYTA [Suspect]
     Active Substance: AXITINIB
     Dosage: 10MG DAILY

REACTIONS (11)
  - Metastatic renal cell carcinoma [Fatal]
  - Abasia [Unknown]
  - Dysgeusia [Recovered/Resolved]
  - Hypophagia [Unknown]
  - Decreased appetite [Not Recovered/Not Resolved]
  - Nausea [Unknown]
  - Disease progression [Fatal]
  - Gastrointestinal disorder [Unknown]
  - Malaise [Not Recovered/Not Resolved]
  - Vomiting [Not Recovered/Not Resolved]
  - Blood thyroid stimulating hormone increased [Not Recovered/Not Resolved]

NARRATIVE: CASE EVENT DATE: 201304
